FAERS Safety Report 6418027-7 (Version None)
Quarter: 2009Q4

REPORT INFORMATION
  Report Type: 
  Country: None (occurrence: None)
  Receive Date: 20091028
  Receipt Date: 20070531
  Transmission Date: 20100525
  Serious: Yes (Hospitalization)
  Sender: FDA-Public Use
  Company Number: FR-PFIZER INC-2009278870

PATIENT
  Age: 70 Year

DRUGS (3)
  1. IRINOTECAN HCL [Suspect]
     Indication: GASTRIC CANCER
  2. FLUOROURACIL [Suspect]
     Indication: GASTRIC CANCER
  3. FOLINIC ACID [Suspect]
     Indication: GASTRIC CANCER

REACTIONS (3)
  - DECREASED APPETITE [None]
  - DEVICE RELATED INFECTION [None]
  - GENERAL PHYSICAL HEALTH DETERIORATION [None]
